FAERS Safety Report 4764052-1 (Version None)
Quarter: 2005Q3

REPORT INFORMATION
  Report Type: 
  Country: None (occurrence: None)
  Receive Date: 20050906
  Receipt Date: 20050614
  Transmission Date: 20060218
  Serious: No
  Sender: FDA-Public Use
  Company Number: 2005-BP-09948BP

PATIENT
  Sex: Female

DRUGS (8)
  1. SPIRIVA [Suspect]
     Indication: CHRONIC OBSTRUCTIVE PULMONARY DISEASE
     Dosage: 18 MCG (18 MCG,QD), IH
     Route: 055
     Dates: start: 20031101
  2. SEREVENT DISCUS (SALMETEROL XINAFOATE) [Concomitant]
  3. PULMICORT [Concomitant]
  4. ALBUTEROL [Concomitant]
  5. THEOPHYLLINE [Concomitant]
  6. ALLEGRA [Concomitant]
  7. NORVASC [Concomitant]
  8. POTASSIUM (POTASSIUM) [Concomitant]

REACTIONS (1)
  - DRUG INEFFECTIVE [None]
